FAERS Safety Report 7929832 (Version 2)
Quarter: 2012Q4

REPORT INFORMATION
  Report Type: Report from Study
  Country: NL (occurrence: NL)
  Receive Date: 20110504
  Receipt Date: 20120829
  Transmission Date: 20130627
  Serious: Yes (Other)
  Sender: FDA-Public Use
  Company Number: NL-BAXTER-2011BH013222

PATIENT
  Age: 85 Year
  Sex: Male

DRUGS (1)
  1. TISSUCOL DUO 500, WEEFSELLIJM [Suspect]
     Indication: WOUND CLOSURE
     Dates: start: 20101108

REACTIONS (1)
  - Haematoma [Unknown]
